FAERS Safety Report 9744906 (Version 2)
Quarter: 2014Q1

REPORT INFORMATION
  Report Type: Report from Study
  Country: ZA (occurrence: ZA)
  Receive Date: 20131211
  Receipt Date: 20140112
  Transmission Date: 20141002
  Serious: Yes (Death, Hospitalization)
  Sender: FDA-Public Use
  Company Number: ZA-ROCHE-1314714

PATIENT
  Age: 67 Year
  Sex: Male

DRUGS (7)
  1. MIRCERA [Suspect]
     Indication: NEPHROGENIC ANAEMIA
     Route: 058
     Dates: start: 201007, end: 201311
  2. MIRCERA [Suspect]
     Route: 058
     Dates: start: 200909
  3. ONE ALPHA [Concomitant]
     Route: 065
  4. FUROSEMIDE [Concomitant]
     Route: 065
  5. CARVEDILOL [Concomitant]
     Route: 065
  6. SIMVASTATIN [Concomitant]
     Dosage: 20MG ONCE A DAY AT NIGHT (NOCTE)
     Route: 065
  7. NIFEDIPINE [Concomitant]
     Route: 065

REACTIONS (4)
  - Death [Fatal]
  - Abdominal strangulated hernia [Not Recovered/Not Resolved]
  - Sepsis [Not Recovered/Not Resolved]
  - Gastrointestinal necrosis [Unknown]
